FAERS Safety Report 9304794 (Version 4)
Quarter: 2013Q3

REPORT INFORMATION
  Report Type: Spontaneous
  Country: AU (occurrence: None)
  Receive Date: 20130521
  Receipt Date: 20130710
  Transmission Date: 20140515
  Serious: Yes (Hospitalization, Other)
  Sender: FDA-Public Use
  Company Number: 2013-0713

PATIENT
  Age: 70 Year
  Sex: Female

DRUGS (17)
  1. CARFILZOMIB [Suspect]
     Indication: PLASMA CELL MYELOMA
     Dosage: 11.1429 MG (39 MG, DAYS 1, 2)
     Route: 042
     Dates: start: 20130212, end: 20130213
  2. DEXAMETHASONE [Suspect]
     Indication: PLASMA CELL MYELOMA
     Dosage: 5.7143 MG (20 MG, DAYS 1, 2, 8, 9, 15, 16, 22, 23, EVERY 28 DAYS)
     Route: 042
     Dates: start: 20130212, end: 20130227
  3. NEXIUM [Concomitant]
  4. VITAMIN C (ASCORBIC ACID) (TABLET) (ASCORBIC ACID) [Concomitant]
  5. IRON (IRON) (TABLET) (IRON) [Concomitant]
  6. MAGNESIUM (MAGNESIUM) (TABLET) (MAGNESIUM) [Concomitant]
  7. CALCIUM (CALCIUM) (CALCIUM) [Concomitant]
  8. SIMETHICONE (SIMETICONE) (SIMETICONE) [Concomitant]
  9. PARACETAMOL (PARACETAMOL) (PARACETAMOL) [Concomitant]
  10. PREDNISONE (PREDNISONE) (PREDNISONE) [Concomitant]
  11. VALTREX (VALACICLOVIR HYDROCHLORIDE) (VALACICLOVIR HYDROCHLORIDE) [Concomitant]
  12. TAMAZEPAM (TEMAZEPAM) (TEMAZEPAM) [Concomitant]
  13. ENDONE (OXYCODONE HYDROCHLORIDE) (OXYCODONE HYDROCHLORIDE) [Concomitant]
  14. KEFLEX (CEFALEXIN) (CEFALEXIN) [Concomitant]
  15. ASPIRIN (ACETYLSALICYLIC ACID) (ACETYLSALICYLIC ACID) [Concomitant]
  16. LORAZEPAM (LORAZEPAM) (LORAZEPAM) [Concomitant]
  17. PANTOPRAZOLE (PANTOPRAZOLE) (PANTOPRAZOLE) [Concomitant]

REACTIONS (15)
  - Arthralgia [None]
  - Dyspnoea exertional [None]
  - Activities of daily living impaired [None]
  - Body height decreased [None]
  - Neuropathy peripheral [None]
  - Mobility decreased [None]
  - Cellulitis [None]
  - Osteoarthritis [None]
  - Neuralgia [None]
  - Oedema peripheral [None]
  - Musculoskeletal pain [None]
  - Polyarthritis [None]
  - Cellulitis [None]
  - Cellulitis [None]
  - Social problem [None]
